FAERS Safety Report 10133414 (Version 1)
Quarter: 2014Q2

REPORT INFORMATION
  Report Type: Spontaneous
  Country: US (occurrence: US)
  Receive Date: 20140428
  Receipt Date: 20140428
  Transmission Date: 20141212
  Serious: No
  Sender: FDA-Public Use
  Company Number: US-PFIZER INC-2014113467

PATIENT
  Age: 45 Year
  Sex: Female
  Weight: 72.56 kg

DRUGS (8)
  1. NEURONTIN [Suspect]
     Indication: FIBROMYALGIA
     Dosage: UNK
     Route: 048
  2. NEURONTIN [Suspect]
     Dosage: 600 MG, 2X/DAY
     Route: 048
     Dates: start: 20140403
  3. VITAMIN B3 [Concomitant]
     Dosage: 2000 IU, UNK
  4. B12-VITAMIN [Concomitant]
     Dosage: UNK, MONTHLY
  5. CYMBALTA [Concomitant]
     Dosage: UNK
  6. REMICADE [Concomitant]
     Dosage: UNK
  7. OMEPRAZOLE [Concomitant]
     Indication: GASTROOESOPHAGEAL REFLUX DISEASE
     Dosage: UNK
  8. OMEPRAZOLE [Concomitant]
     Indication: CROHN^S DISEASE

REACTIONS (10)
  - Drug ineffective [Unknown]
  - Limb injury [Unknown]
  - Pain in extremity [Unknown]
  - Platelet count increased [Unknown]
  - White blood cell count increased [Unknown]
  - Blood sodium decreased [Unknown]
  - Vitamin D decreased [Unknown]
  - Blood cholesterol increased [Unknown]
  - Blood disorder [Unknown]
  - Coagulopathy [Unknown]
